FAERS Safety Report 9712833 (Version 1)
Quarter: 2013Q4

REPORT INFORMATION
  Report Type: Spontaneous
  Country: US (occurrence: US)
  Receive Date: 20131126
  Receipt Date: 20131126
  Transmission Date: 20140711
  Serious: No
  Sender: FDA-Public Use
  Company Number: US-BRISTOL-MYERS SQUIBB COMPANY-18925958

PATIENT
  Age: 37 Year
  Sex: Female
  Weight: 83.9 kg

DRUGS (6)
  1. BYDUREON [Suspect]
     Indication: TYPE 2 DIABETES MELLITUS
     Dosage: START: 10 WEEKS AGO
     Route: 058
  2. RANITIDINE [Concomitant]
  3. LORATADINE [Concomitant]
  4. PRAVASTATIN SODIUM [Concomitant]
  5. LASIX [Concomitant]
  6. LANTUS [Concomitant]

REACTIONS (3)
  - Injection site nodule [Unknown]
  - Injection site pruritus [Unknown]
  - Injection site pain [Unknown]
